FAERS Safety Report 19607967 (Version 4)
Quarter: 2021Q3

REPORT INFORMATION
  Report Type: Spontaneous
  Country: US (occurrence: US)
  Receive Date: 20210726
  Receipt Date: 20210909
  Transmission Date: 20211014
  Serious: No
  Sender: FDA-Public Use
  Company Number: US-JNJFOC-20210732109

PATIENT
  Age: 47 Year
  Sex: Male
  Weight: 72.64 kg

DRUGS (1)
  1. MENS ROGAINE EXTRA STRENGTH [Suspect]
     Active Substance: MINOXIDIL
     Indication: ALOPECIA
     Dosage: IT^S A ABOUT THE SIZE OF A GOLF BALL
     Route: 061
     Dates: start: 20210101

REACTIONS (4)
  - Hair injury [Recovered/Resolved]
  - Suspected counterfeit product [Unknown]
  - Incorrect dose administered [Unknown]
  - Product container issue [Unknown]

NARRATIVE: CASE EVENT DATE: 2021
